FAERS Safety Report 5786010-0 (Version None)
Quarter: 2008Q2

REPORT INFORMATION
  Report Type: 
  Country: None (occurrence: None)
  Receive Date: 20080624
  Receipt Date: 20080624
  Transmission Date: 20081010
  Serious: Yes (Other)
  Sender: FDA-Public Use
  Company Number: PHHO2007PE10397

PATIENT
  Sex: Female
  Weight: 67 kg

DRUGS (2)
  1. SPH100 SPH+TAB [Suspect]
     Indication: ESSENTIAL HYPERTENSION
     Dosage: 300/12.5 MG, QD
     Route: 048
     Dates: start: 20070425
  2. ALISKIREN [Suspect]
     Indication: ESSENTIAL HYPERTENSION
     Route: 048

REACTIONS (4)
  - DERMAL CYST [None]
  - PAIN [None]
  - PANNICULITIS [None]
  - SECRETION DISCHARGE [None]
